FAERS Safety Report 24861924 (Version 1)
Quarter: 2025Q1

REPORT INFORMATION
  Report Type: Report from Study
  Country: CA (occurrence: CA)
  Receive Date: 20250120
  Receipt Date: 20250120
  Transmission Date: 20250409
  Serious: Yes (Hospitalization)
  Sender: JOHNSON AND JOHNSON
  Company Number: CA-JNJFOC-20250116546

PATIENT
  Age: 65 Year
  Sex: Female

DRUGS (1)
  1. TECLISTAMAB [Suspect]
     Active Substance: TECLISTAMAB
     Indication: Plasma cell myeloma
     Dates: start: 20241009, end: 20250106

REACTIONS (2)
  - Decreased immune responsiveness [Unknown]
  - Cardiomegaly [Unknown]
